FAERS Safety Report 15869555 (Version 2)
Quarter: 2019Q2

REPORT INFORMATION
  Report Type: Spontaneous
  Country: US (occurrence: US)
  Receive Date: 20190125
  Receipt Date: 20190530
  Transmission Date: 20190711
  Serious: Yes (Hospitalization, Other)
  Sender: FDA-Public Use
  Company Number: US-PFIZER INC-2019027307

PATIENT
  Age: 47 Year
  Sex: Female
  Weight: 85 kg

DRUGS (7)
  1. CLONIDINE. [Concomitant]
     Active Substance: CLONIDINE
     Indication: PAIN
     Dosage: UNK
     Dates: start: 201801, end: 2018
  2. SUBUTEX ODT [Concomitant]
     Dosage: UNK
     Dates: start: 201711
  3. LYRICA [Suspect]
     Active Substance: PREGABALIN
     Indication: NERVE INJURY
  4. LYRICA [Suspect]
     Active Substance: PREGABALIN
     Indication: SKIN DISORDER
     Dosage: 150 MG, 2X/DAY
     Route: 048
     Dates: start: 2017
  5. CLONIDINE. [Concomitant]
     Active Substance: CLONIDINE
     Dosage: 0.5 MG, 3X/DAY (MORNING, AFTERNOON AND NIGHT)
     Route: 048
     Dates: start: 201804
  6. LYRICA [Suspect]
     Active Substance: PREGABALIN
     Indication: DIABETES MELLITUS
  7. SUBUTEX ODT [Concomitant]
     Indication: PAIN
     Dosage: 2 MG, 3X/DAY
     Route: 060
     Dates: start: 201710

REACTIONS (6)
  - Product dose omission [Recovered/Resolved]
  - Skin lesion [Recovering/Resolving]
  - Off label use [Unknown]
  - Product use in unapproved indication [Unknown]
  - Staphylococcal infection [Recovering/Resolving]
  - Gait inability [Recovered/Resolved]

NARRATIVE: CASE EVENT DATE: 2017
